FAERS Safety Report 16141620 (Version 1)
Quarter: 2019Q2

REPORT INFORMATION
  Report Type: Spontaneous
  Country: US (occurrence: US)
  Receive Date: 20190331
  Receipt Date: 20190331
  Transmission Date: 20190711
  Serious: No
  Sender: FDA-Public Use
  Company Number: None

PATIENT
  Age: 19 Year
  Sex: Male
  Weight: 126 kg

DRUGS (10)
  1. MEPRON [Concomitant]
     Active Substance: ATOVAQUONE
  2. IBUPROFEN. [Concomitant]
     Active Substance: IBUPROFEN
  3. BENADRYL [Concomitant]
     Active Substance: DIPHENHYDRAMINE HYDROCHLORIDE
  4. NYSTATIN. [Concomitant]
     Active Substance: NYSTATIN
  5. AIMOVIG [Suspect]
     Active Substance: ERENUMAB-AOOE
     Indication: NEW DAILY PERSISTENT HEADACHE
     Dosage: ?          QUANTITY:1 INJECTION(S);OTHER FREQUENCY:MONTHLY;OTHER ROUTE:SUBCUTANEOUS INJECTION?
     Route: 058
     Dates: start: 20181111, end: 20181220
  6. AZITHROMYCIN ANHYDROUS. [Concomitant]
     Active Substance: AZITHROMYCIN ANHYDROUS
  7. METHADONE [Concomitant]
     Active Substance: METHADONE HYDROCHLORIDE
  8. GAMUNEX-C IMMUNOGLOBULINS [Concomitant]
  9. CIPROFLOXACIN. [Concomitant]
     Active Substance: CIPROFLOXACIN
  10. TRAMADOL. [Concomitant]
     Active Substance: TRAMADOL

REACTIONS (8)
  - Reading disorder [None]
  - Confusional state [None]
  - Gait disturbance [None]
  - Depression [None]
  - Anxiety [None]
  - Speech disorder [None]
  - Impaired driving ability [None]
  - Feeling abnormal [None]

NARRATIVE: CASE EVENT DATE: 20181111
